FAERS Safety Report 4887366-3 (Version None)
Quarter: 2006Q1

REPORT INFORMATION
  Report Type: 
  Country: None (occurrence: None)
  Receive Date: 20060123
  Receipt Date: 20060113
  Transmission Date: 20060701
  Serious: Yes (Hospitalization)
  Sender: FDA-Public Use
  Company Number: JP-JNJFOC-20050605544

PATIENT
  Sex: Female
  Weight: 47 kg

DRUGS (23)
  1. REMICADE [Suspect]
     Route: 042
  2. REMICADE [Suspect]
     Route: 042
  3. REMICADE [Suspect]
     Indication: RHEUMATOID ARTHRITIS
     Route: 042
  4. RHEUMATREX [Suspect]
     Dosage: START AND STOP DATES UNKNOWN
     Route: 048
  5. RHEUMATREX [Suspect]
     Indication: RHEUMATOID ARTHRITIS
     Dosage: (START DATE UNKNOWN) IMPROVEMENT WITH DISCONTINUATION OF DRUG
     Route: 048
  6. PREDONINE [Suspect]
     Route: 048
  7. PREDONINE [Suspect]
     Route: 048
  8. PREDONINE [Suspect]
     Route: 048
  9. PREDONINE [Suspect]
     Route: 048
  10. PREDONINE [Suspect]
     Indication: RHEUMATOID ARTHRITIS
     Route: 048
  11. ADRENAL HOROMONE [Concomitant]
     Indication: RHEUMATOID ARTHRITIS
     Route: 065
  12. FLUCAM [Concomitant]
     Indication: RHEUMATOID ARTHRITIS
     Route: 048
  13. BRUFEN [Concomitant]
     Indication: RHEUMATOID ARTHRITIS
     Route: 048
  14. DIDRONEL [Concomitant]
     Route: 048
  15. POLARAMINE [Concomitant]
     Route: 048
  16. DEPAS [Concomitant]
     Route: 048
  17. KAMAG G [Concomitant]
     Route: 048
  18. GLAKAY [Concomitant]
     Dosage: 2 CAP
     Route: 048
  19. NORVASC [Concomitant]
     Route: 048
  20. DIOVAN [Concomitant]
     Route: 048
  21. THYRADIN S [Concomitant]
     Route: 048
  22. SELBEX [Concomitant]
     Route: 048
  23. TOUCHRON [Concomitant]
     Route: 048

REACTIONS (2)
  - PNEUMOCYSTIS JIROVECI INFECTION [None]
  - PULMONARY MYCOSIS [None]
